FAERS Safety Report 10251084 (Version 1)
Quarter: 2014Q2

REPORT INFORMATION
  Report Type: Spontaneous
  Country: DK (occurrence: DK)
  Receive Date: 20140620
  Receipt Date: 20140620
  Transmission Date: 20141212
  Serious: Yes (Hospitalization, Other)
  Sender: FDA-Public Use
  Company Number: DK-ABBVIE-14P-044-1247681-00

PATIENT
  Age: 44 Year
  Sex: Male

DRUGS (1)
  1. HUMIRA [Suspect]
     Indication: ANKYLOSING SPONDYLITIS
     Dates: start: 20100910

REACTIONS (12)
  - Lung infiltration [Unknown]
  - Malaise [Unknown]
  - Hospitalisation [Unknown]
  - Tuberculosis [Unknown]
  - Pyrexia [Unknown]
  - Productive cough [Unknown]
  - Night sweats [Unknown]
  - Weight decreased [Unknown]
  - Drug effect incomplete [Unknown]
  - Cough [Unknown]
  - Malaise [Unknown]
  - Night sweats [Unknown]
